FAERS Safety Report 11469431 (Version 2)
Quarter: 2015Q3

REPORT INFORMATION
  Report Type: Spontaneous
  Country: US (occurrence: US)
  Receive Date: 20150903
  Receipt Date: 20150903
  Transmission Date: 20151125
  Serious: No
  Sender: FDA-Public Use
  Company Number: US-ELI_LILLY_AND_COMPANY-US201110001362

PATIENT
  Age: 35 Year
  Sex: Male

DRUGS (3)
  1. CYMBALTA [Suspect]
     Active Substance: DULOXETINE HYDROCHLORIDE
     Dosage: 60 MG, QD
     Dates: start: 20110917
  2. CYMBALTA [Suspect]
     Active Substance: DULOXETINE HYDROCHLORIDE
     Indication: NECK PAIN
     Dosage: 30 MG, QD
     Dates: start: 20110910, end: 20110916
  3. MOTRIN [Concomitant]
     Active Substance: IBUPROFEN
     Dosage: 800 DF, UNK

REACTIONS (5)
  - Neck injury [Unknown]
  - Muscular weakness [Unknown]
  - Fall [Recovered/Resolved]
  - Dizziness [Unknown]
  - Laceration [Unknown]

NARRATIVE: CASE EVENT DATE: 20110922
